FAERS Safety Report 12967975 (Version 2)
Quarter: 2016Q4

REPORT INFORMATION
  Report Type: Spontaneous
  Country: US (occurrence: US)
  Receive Date: 20161123
  Receipt Date: 20161208
  Transmission Date: 20170207
  Serious: Yes (Hospitalization)
  Sender: FDA-Public Use
  Company Number: US-CONCORDIA PHARMACEUTICALS INC.-GSH201611-005936

PATIENT
  Age: 65 Year
  Sex: Female

DRUGS (2)
  1. KAYEXALATE [Suspect]
     Active Substance: SODIUM POLYSTYRENE SULFONATE
     Indication: TUMOUR LYSIS SYNDROME
     Route: 065
  2. INSULIN [Concomitant]
     Active Substance: INSULIN NOS
     Indication: TUMOUR LYSIS SYNDROME

REACTIONS (7)
  - Diarrhoea [Unknown]
  - Colonoscopy abnormal [Unknown]
  - Abdominal pain [Unknown]
  - Haemoglobin decreased [Unknown]
  - Product deposit [Unknown]
  - Haematochezia [Unknown]
  - Colitis [Unknown]
